FAERS Safety Report 8765434 (Version 2)
Quarter: 2012Q4

REPORT INFORMATION
  Report Type: 
  Country: US (occurrence: US)
  Receive Date: 20120903
  Receipt Date: 20121105
  Transmission Date: 20130627
  Serious: Yes (Other)
  Sender: FDA-Public Use
  Company Number: US-PFIZER INC-2012215233

PATIENT
  Age: 47 Year
  Sex: Female
  Weight: 72.6 kg

DRUGS (3)
  1. PRISTIQ [Suspect]
     Indication: DEPRESSION
     Dosage: 50 mg, 1x/day
     Route: 048
     Dates: start: 201003
  2. PRISTIQ [Suspect]
     Indication: ANXIETY
     Dosage: 50 mg, each day
     Route: 048
     Dates: start: 20110120, end: 201207
  3. LIPITOR [Suspect]
     Indication: HIGH CHOLESTEROL
     Dosage: 20 mg, 1x/day
     Route: 048

REACTIONS (6)
  - Hypertension [Recovering/Resolving]
  - Blood cholesterol increased [Unknown]
  - Withdrawal syndrome [Not Recovered/Not Resolved]
  - Nausea [Not Recovered/Not Resolved]
  - Dizziness [Not Recovered/Not Resolved]
  - Anxiety [Not Recovered/Not Resolved]
